FAERS Safety Report 5848668-7 (Version None)
Quarter: 2008Q3

REPORT INFORMATION
  Report Type: 
  Country: None (occurrence: None)
  Receive Date: 20080818
  Receipt Date: 20080807
  Transmission Date: 20090109
  Serious: Yes (Other)
  Sender: FDA-Public Use
  Company Number: SE-ELI_LILLY_AND_COMPANY-SE200808002407

PATIENT
  Age: 50 Year
  Sex: Female

DRUGS (3)
  1. CYMBALTA [Suspect]
     Indication: DEPRESSION
     Dosage: 60 MG, DAILY (1/D)
     Route: 048
  2. ORAL CONTRACEPTIVE NOS [Concomitant]
     Dosage: UNK, UNKNOWN
     Route: 065
  3. ACETAMINOPHEN W/ CODEINE [Concomitant]
     Indication: MYALGIA
     Dosage: 500MG PARACETAMOL/30MG CODEINE
     Route: 048

REACTIONS (2)
  - CONTUSION [None]
  - HAEMORRHAGE [None]
